FAERS Safety Report 10979049 (Version 10)
Quarter: 2016Q2

REPORT INFORMATION
  Report Type: Spontaneous
  Country: US (occurrence: US)
  Receive Date: 20150402
  Receipt Date: 20160404
  Transmission Date: 20160815
  Serious: No
  Sender: FDA-Public Use
  Company Number: US-PFIZER INC-2015109113

PATIENT
  Age: 62 Year
  Sex: Male
  Weight: 89 kg

DRUGS (13)
  1. SUTENT [Suspect]
     Active Substance: SUNITINIB MALATE
     Dosage: 37.5 MG, 1X/DAY (28 DAYS ON/ 14 DAYS OFF)
     Route: 048
  2. MIRALAX [Concomitant]
     Active Substance: POLYETHYLENE GLYCOL 3350
     Dosage: UNK, AS NEEDED
  3. SYMBICORT [Concomitant]
     Active Substance: BUDESONIDE\FORMOTEROL FUMARATE DIHYDRATE
     Dosage: UNK
  4. SUTENT [Suspect]
     Active Substance: SUNITINIB MALATE
     Dosage: 37.5 MG, DAILY
     Route: 048
  5. HYDROCHLOROTHIAZIDE/LISINOPRIL [Concomitant]
     Indication: HYPERTENSION
     Dosage: 20/25 MG, 1X/DAY
     Route: 048
  6. LIBRAX [Concomitant]
     Active Substance: CHLORDIAZEPOXIDE HYDROCHLORIDE\CLIDINIUM BROMIDE
     Dosage: UNK, AS NEEDED
  7. SUTENT [Suspect]
     Active Substance: SUNITINIB MALATE
     Indication: RENAL CANCER STAGE IV
     Dosage: 50 MG, UNK
     Route: 048
     Dates: start: 20140901
  8. SUTENT [Suspect]
     Active Substance: SUNITINIB MALATE
     Dosage: 37.5 MG, CYCLIC (4 WEEKS ON AND 3 WEEKS OFF)
     Route: 048
  9. CRESTOR [Concomitant]
     Active Substance: ROSUVASTATIN CALCIUM
     Indication: BLOOD CHOLESTEROL ABNORMAL
     Dosage: 10 MG, DAILY
  10. LEVOTHYROXIN [Concomitant]
     Active Substance: LEVOTHYROXINE
     Indication: THYROID DISORDER
     Dosage: 50 ?G, 1X/DAY (ONE TABLET FOR 7 DAYS AND NOW HE WAS TAKING 2 TABLET ONCE A DAY)
     Route: 048
  11. HYDROCODONE [Concomitant]
     Active Substance: HYDROCODONE
     Dosage: UNK, AS NEEDED
  12. MINOCYCLINE [Concomitant]
     Active Substance: MINOCYCLINE\MINOCYCLINE HYDROCHLORIDE
     Dosage: UNK, AS NEEDED
  13. LEVOTHYROXIN [Concomitant]
     Active Substance: LEVOTHYROXINE
     Dosage: UNK, PRN

REACTIONS (37)
  - Constipation [Unknown]
  - Abnormal dreams [Unknown]
  - Genital discomfort [Unknown]
  - Asthenia [Unknown]
  - Stomatitis [Recovering/Resolving]
  - Nasal discomfort [Recovering/Resolving]
  - Thyroid function test abnormal [Unknown]
  - Abdominal discomfort [Unknown]
  - Diarrhoea [Recovered/Resolved]
  - Decreased appetite [Unknown]
  - Paranasal sinus hypersecretion [Unknown]
  - Myalgia [Recovering/Resolving]
  - Adrenal disorder [Unknown]
  - Weight decreased [Unknown]
  - Initial insomnia [Unknown]
  - Chronic obstructive pulmonary disease [Unknown]
  - Testicular pain [Recovering/Resolving]
  - Blood potassium decreased [Unknown]
  - Proctalgia [Unknown]
  - Blister [Recovered/Resolved]
  - Genital blister [Recovered/Resolved]
  - Abdominal discomfort [Recovered/Resolved]
  - Abdominal pain upper [Recovered/Resolved]
  - Pyrexia [Unknown]
  - Dry skin [Unknown]
  - Skin exfoliation [Unknown]
  - Sinusitis [Not Recovered/Not Resolved]
  - Dyspnoea [Unknown]
  - Malaise [Recovered/Resolved]
  - Genital lesion [Recovering/Resolving]
  - Genital erythema [Unknown]
  - Asthenia [Recovered/Resolved]
  - Hypersomnia [Recovered/Resolved]
  - Oral mucosal blistering [Recovered/Resolved]
  - Influenza like illness [Unknown]
  - Muscle spasms [Unknown]
  - Temperature intolerance [Unknown]
